FAERS Safety Report 7113892-2 (Version None)
Quarter: 2010Q4

REPORT INFORMATION
  Report Type: 
  Country: None (occurrence: None)
  Receive Date: 20101119
  Receipt Date: 20100930
  Transmission Date: 20110411
  Serious: No
  Sender: FDA-Public Use
  Company Number: US-BAYER-201021981BCC

PATIENT
  Age: 74 Year
  Sex: Male
  Weight: 82 kg

DRUGS (4)
  1. ALEVE (CAPLET) [Suspect]
     Indication: FIBROMYALGIA
     Dosage: SOMETIMES HE TAKES 3 TABLETS AT ONCE, AND SOMETIMES HE TAKES 1 TABLET EVERY 8 HOURS.
     Route: 048
  2. NEXIUM [Concomitant]
  3. ZOCOR [Concomitant]
  4. LIBRIUM [Concomitant]

REACTIONS (1)
  - PAIN IN EXTREMITY [None]
